FAERS Safety Report 10509922 (Version 1)
Quarter: 2014Q4

REPORT INFORMATION
  Report Type: Spontaneous
  Country: US (occurrence: US)
  Receive Date: 20141010
  Receipt Date: 20141010
  Transmission Date: 20150528
  Serious: No
  Sender: FDA-Public Use
  Company Number: US-ELI_LILLY_AND_COMPANY-US201410001014

PATIENT
  Sex: Male

DRUGS (1)
  1. HUMATROPE [Suspect]
     Active Substance: SOMATROPIN
     Indication: GROWTH HORMONE DEFICIENCY
     Dosage: UNK, UNKNOWN
     Route: 065
     Dates: start: 201409

REACTIONS (5)
  - Visual acuity reduced [Unknown]
  - Affective disorder [Unknown]
  - Psychiatric symptom [Unknown]
  - Depression [Unknown]
  - Asthenia [Unknown]
